FAERS Safety Report 8206267-6 (Version None)
Quarter: 2012Q1

REPORT INFORMATION
  Report Type: 
  Country: None (occurrence: None)
  Receive Date: 20120313
  Receipt Date: 20120303
  Transmission Date: 20120608
  Serious: Yes (Hospitalization, Other)
  Sender: FDA-Public Use
  Company Number: PHHY2012BR019916

PATIENT
  Sex: Female

DRUGS (3)
  1. PREDNISONE TAB [Concomitant]
     Indication: DERMATITIS CONTACT
  2. AMOXICILLIN AND CLAVULANATE POTASSIUM [Concomitant]
     Indication: INFECTION
     Dosage: 1 TABLET EACH 8 HOURS
  3. TEGRETOL-XR [Suspect]
     Indication: EPILEPSY
     Dosage: 1 TABLET DAILY AT NIGHT
     Route: 048

REACTIONS (7)
  - FALL [None]
  - URINARY TRACT INFECTION [None]
  - MEMORY IMPAIRMENT [None]
  - DERMATITIS ALLERGIC [None]
  - BACK PAIN [None]
  - DYSPEPSIA [None]
  - DISORIENTATION [None]
